FAERS Safety Report 5047162-3 (Version None)
Quarter: 2006Q3

REPORT INFORMATION
  Report Type: 
  Country: None (occurrence: None)
  Receive Date: 20060703
  Receipt Date: 20060622
  Transmission Date: 20061208
  Serious: Yes (Hospitalization)
  Sender: FDA-Public Use
  Company Number: 2006072393

PATIENT
  Age: 43 Year
  Sex: Female

DRUGS (8)
  1. IRINOTECAN HCL [Suspect]
     Indication: CHLOROMA
     Dosage: (DAY 1, 8, 15 OF EACH 4-WEEKS COURSE), INTRAVENOUS
     Route: 042
  2. CISPLATIN [Concomitant]
  3. DESMOPRESSIN ACETATE [Concomitant]
  4. THEOPHYLLINE [Concomitant]
  5. HUSTAGIN (PLANTAGO MAJOR) [Concomitant]
  6. CODEINE PHOSPHATE (CODEINE PHOSPHATE) [Concomitant]
  7. MAGNESIUM OXIDE (MAGNESIUM OXIDE) [Concomitant]
  8. PRIMPERAN TAB [Concomitant]

REACTIONS (44)
  - ACTINOMYCOTIC PULMONARY INFECTION [None]
  - BLOOD GLUCOSE INCREASED [None]
  - BRONCHIAL ULCERATION [None]
  - CARDIOVASCULAR DISORDER [None]
  - CEREBRAL HAEMORRHAGE [None]
  - CHOLECYSTITIS [None]
  - CYST [None]
  - DEPRESSED LEVEL OF CONSCIOUSNESS [None]
  - DIARRHOEA [None]
  - DIVERTICULUM INTESTINAL [None]
  - FEELING ABNORMAL [None]
  - HAEMOGLOBIN DECREASED [None]
  - HEPATIC ATROPHY [None]
  - HEPATIC STEATOSIS [None]
  - HYPERALBUMINAEMIA [None]
  - MALIGNANT NEOPLASM PROGRESSION [None]
  - METASTASES TO ADRENALS [None]
  - METASTASES TO BONE MARROW [None]
  - METASTASES TO GALLBLADDER [None]
  - METASTASES TO GASTROINTESTINAL TRACT [None]
  - METASTASES TO HEART [None]
  - METASTASES TO KIDNEY [None]
  - METASTASES TO LIVER [None]
  - METASTASES TO LYMPH NODES [None]
  - METASTASES TO PLEURA [None]
  - METASTASES TO SPLEEN [None]
  - METASTASES TO UTERUS [None]
  - MYDRIASIS [None]
  - NAUSEA [None]
  - NEUTROPHIL COUNT DECREASED [None]
  - OBSTRUCTIVE AIRWAYS DISORDER [None]
  - OEDEMA PERIPHERAL [None]
  - OVARIAN ATROPHY [None]
  - PELVIC MASS [None]
  - PLEURAL EFFUSION [None]
  - PUPILLARY REFLEX IMPAIRED [None]
  - PYELECTASIA [None]
  - RESPIRATORY DISORDER [None]
  - STAPHYLOCOCCAL INFECTION [None]
  - SUPERIOR VENA CAVAL OCCLUSION [None]
  - THROMBOCYTOPENIA [None]
  - THYROID ATROPHY [None]
  - TRACHEAL STENOSIS [None]
  - UTERINE HYPOPLASIA [None]
